FAERS Safety Report 19441248 (Version 2)
Quarter: 2021Q3

REPORT INFORMATION
  Report Type: Spontaneous
  Country: US (occurrence: US)
  Receive Date: 20210621
  Receipt Date: 20210831
  Transmission Date: 20211014
  Serious: Yes (Other)
  Sender: FDA-Public Use
  Company Number: US-BAYER-2021-161206

PATIENT
  Age: 28 Year
  Sex: Female

DRUGS (1)
  1. SKYLA [Suspect]
     Active Substance: LEVONORGESTREL
     Indication: CONTRACEPTION
     Dosage: 14  ?G PER DAY, CONTINUOUSLY
     Route: 015
     Dates: start: 20190628, end: 20210618

REACTIONS (2)
  - Drug ineffective [None]
  - Pregnancy with contraceptive device [None]

NARRATIVE: CASE EVENT DATE: 20210618
